FAERS Safety Report 8691237 (Version 3)
Quarter: 2012Q4

REPORT INFORMATION
  Report Type: 
  Country: FR (occurrence: FR)
  Receive Date: 20120730
  Receipt Date: 20120925
  Transmission Date: 20130627
  Serious: Yes (Hospitalization, Other)
  Sender: FDA-Public Use
  Company Number: PHHY2012FR052646

PATIENT
  Age: 60 Year
  Sex: Female

DRUGS (15)
  1. LEPONEX [Suspect]
     Indication: PSYCHOTIC DISORDER
     Dosage: 25 mg, daily
     Dates: start: 20111228, end: 20120530
  2. LEPONEX [Suspect]
     Dosage: 50 mg, daily
     Dates: start: 2012
  3. LEPONEX [Suspect]
     Dosage: 12.5 mg, daily
     Dates: start: 20120613, end: 20120618
  4. MIANSERIN [Suspect]
     Indication: DEPRESSION
     Dosage: 10 mg, UNK
     Route: 048
     Dates: start: 20120525, end: 20120531
  5. STALEVO [Concomitant]
  6. TERALITHE [Concomitant]
  7. CALCIDOSE [Concomitant]
  8. NORSET [Concomitant]
  9. MODOPAR [Concomitant]
  10. RIVOTRIL [Concomitant]
  11. AZILECT [Concomitant]
  12. SINEMET [Concomitant]
  13. DRIPTANE [Concomitant]
  14. ATARAX [Concomitant]
  15. ACID ALENDRONIQUE [Concomitant]

REACTIONS (4)
  - Neutropenia [Recovered/Resolved]
  - Depression [Unknown]
  - Urinary tract infection [Unknown]
  - Leukopenia [Recovered/Resolved]
